FAERS Safety Report 7997839-2 (Version None)
Quarter: 2011Q4

REPORT INFORMATION
  Report Type: 
  Country: None (occurrence: None)
  Receive Date: 20111212
  Receipt Date: 20111206
  Transmission Date: 20120403
  Serious: Yes (Other)
  Sender: FDA-Public Use
  Company Number: 2011028635

PATIENT
  Age: 11 Year
  Sex: Female
  Weight: 37.6486 kg

DRUGS (14)
  1. HIZENTRA [Suspect]
  2. TRAZODONE HCL [Concomitant]
  3. DDAVP [Concomitant]
  4. ACETAMINOPHEN [Concomitant]
  5. ZOLOFT [Concomitant]
  6. HIZENTRA [Suspect]
     Indication: COMBINED IMMUNODEFICIENCY
     Dosage: (SUBCUTANEOUS), (4 G 1X/WEEK, 20 ML WEEKLY IN 2 SITES OVER 1 HOUR 21 MIN SUBCUTANEOUS), (4 G 1X/WEEK
     Route: 058
     Dates: start: 20110101
  7. HIZENTRA [Suspect]
     Indication: COMBINED IMMUNODEFICIENCY
     Dosage: (SUBCUTANEOUS), (4 G 1X/WEEK, 20 ML WEEKLY IN 2 SITES OVER 1 HOUR 21 MIN SUBCUTANEOUS), (4 G 1X/WEEK
     Route: 058
     Dates: start: 20110420
  8. HIZENTRA [Suspect]
     Indication: COMBINED IMMUNODEFICIENCY
     Dosage: (SUBCUTANEOUS), (4 G 1X/WEEK, 20 ML WEEKLY IN 2 SITES OVER 1 HOUR 21 MIN SUBCUTANEOUS), (4 G 1X/WEEK
     Route: 058
     Dates: start: 20110427
  9. ZOFRAN [Concomitant]
  10. BACTRIM [Concomitant]
  11. HEPARIN [Concomitant]
  12. TENEX [Concomitant]
  13. AUGMENTIN '125' [Concomitant]
  14. MULTIVITAMIN (DAILY MULTIVITAMIN) [Concomitant]

REACTIONS (2)
  - RESPIRATORY TRACT INFECTION [None]
  - SINUSITIS [None]
